FAERS Safety Report 5735825-3 (Version None)
Quarter: 2008Q2

REPORT INFORMATION
  Report Type: 
  Country: None (occurrence: None)
  Receive Date: 20080508
  Receipt Date: 20080508
  Transmission Date: 20081010
  Serious: Yes (Disabling)
  Sender: FDA-Public Use
  Company Number: None

PATIENT
  Age: 11 Year
  Sex: Male
  Weight: 45.3597 kg

DRUGS (2)
  1. CREST PRO-HEALTH RINSE PROCTER + GAMBLE [Suspect]
     Indication: DENTAL DISORDER PROPHYLAXIS
     Dosage: 20 ML 1X DENTAL  1 PLUS YEAR
     Route: 004
  2. CREST PRO-HEALTH RINSE NIGHT PROCTER + GAMBLE [Suspect]
     Dosage: 20 ML 1X DENTAL
     Route: 004

REACTIONS (2)
  - ABNORMAL BEHAVIOUR [None]
  - TOOTH DISCOLOURATION [None]
